FAERS Safety Report 23797619 (Version 3)
Quarter: 2025Q1

REPORT INFORMATION
  Report Type: Report from Study
  Country: IT (occurrence: VA)
  Receive Date: 20240430
  Receipt Date: 20250214
  Transmission Date: 20250409
  Serious: No
  Sender: Unknown Manufacturer
  Company Number: None

PATIENT

DRUGS (2)
  1. MARALIXIBAT CHLORIDE [Suspect]
     Active Substance: MARALIXIBAT CHLORIDE
     Indication: Cholestasis
     Dosage: 1.75 MILLILITER, QD (1.75 ML PER DAY)
     Route: 048
     Dates: start: 20230724, end: 20240314
  2. MARALIXIBAT CHLORIDE [Suspect]
     Active Substance: MARALIXIBAT CHLORIDE
     Indication: Alagille syndrome

REACTIONS (1)
  - Transaminases increased [Unknown]

NARRATIVE: CASE EVENT DATE: 20240202
